FAERS Safety Report 4547414-7 (Version None)
Quarter: 2005Q1

REPORT INFORMATION
  Report Type: 
  Country: None (occurrence: None)
  Receive Date: 20050107
  Receipt Date: 20041229
  Transmission Date: 20050727
  Serious: Yes (Other)
  Sender: FDA-Public Use
  Company Number: JP-ROCHE-391450

PATIENT
  Age: 70 Year
  Sex: Female

DRUGS (4)
  1. PEG-INTERFERON A-2A (RO 25-8310) [Suspect]
     Route: 058
     Dates: start: 20040924, end: 20041105
  2. ATELEC [Concomitant]
     Route: 048
     Dates: start: 20040903, end: 20041116
  3. URSO 250 [Concomitant]
     Dosage: FORM: ORAL FORMULATION (NOT OTHERWISE SPECIFIED).
     Route: 048
     Dates: start: 20040903
  4. INDERAL LA [Concomitant]
     Route: 048
     Dates: start: 20041117

REACTIONS (4)
  - ABDOMINAL DISTENSION [None]
  - FATIGUE [None]
  - HYPOALBUMINAEMIA [None]
  - LEUKOPENIA [None]
